FAERS Safety Report 7044494-4 (Version None)
Quarter: 2010Q4

REPORT INFORMATION
  Report Type: 
  Country: None (occurrence: None)
  Receive Date: 20101014
  Receipt Date: 20100913
  Transmission Date: 20110411
  Serious: Yes (Hospitalization)
  Sender: FDA-Public Use
  Company Number: CA-ASTRAZENECA-2010SE43394

PATIENT
  Age: 36 Year
  Sex: Female

DRUGS (2)
  1. PULMICORT [Suspect]
     Indication: ASTHMA
     Route: 055
     Dates: start: 20090501
  2. VENTOLIN [Concomitant]
     Indication: ASTHMA
     Route: 055
     Dates: start: 20090501

REACTIONS (1)
  - ASTHMA [None]
